FAERS Safety Report 23278582 (Version 1)
Quarter: 2023Q4

REPORT INFORMATION
  Report Type: Spontaneous
  Country: US (occurrence: None)
  Receive Date: 20231208
  Receipt Date: 20231208
  Transmission Date: 20240110
  Serious: Yes (Hospitalization)
  Sender: FDA-Public Use
  Company Number: None

PATIENT
  Sex: Male

DRUGS (1)
  1. OXBRYTA [Suspect]
     Active Substance: VOXELOTOR
     Indication: Haemoglobin C disease
     Dosage: FREQUENCY : DAILY;?
     Route: 048
     Dates: start: 202010

REACTIONS (3)
  - Sickle cell anaemia with crisis [None]
  - Back pain [None]
  - Arthralgia [None]
